FAERS Safety Report 15352961 (Version 4)
Quarter: 2019Q3

REPORT INFORMATION
  Report Type: Spontaneous
  Country: JP (occurrence: JP)
  Receive Date: 20180905
  Receipt Date: 20190725
  Transmission Date: 20191004
  Serious: Yes (Hospitalization, Other)
  Sender: FDA-Public Use
  Company Number: JP-ASTRAZENECA-2018SF10548

PATIENT
  Age: 81 Year
  Sex: Male
  Weight: 59 kg

DRUGS (11)
  1. AMLODIPINE [Concomitant]
     Active Substance: AMLODIPINE BESYLATE
     Indication: HYPERTENSION
     Route: 048
  2. CALONAL [Concomitant]
     Active Substance: ACETAMINOPHEN
     Indication: PYREXIA
     Dosage: 500 MG EVERY DAY, AS REQUIRED
     Route: 048
     Dates: end: 20180820
  3. CARBOPLATIN. [Suspect]
     Active Substance: CARBOPLATIN
     Indication: NON-SMALL CELL LUNG CANCER
     Dosage: DOSE UNKNOWN
     Route: 042
     Dates: start: 20180510, end: 20180611
  4. MALFA [Concomitant]
     Active Substance: ALUMINUM HYDROXIDE\MAGNESIUM HYDROXIDE
     Indication: PEPTIC ULCER
     Route: 048
     Dates: end: 20180804
  5. TSUMURA SHAKUYAKUKANZOTO EXTRACT GRANULES FOR ETHICAL USE [Concomitant]
     Indication: PAIN
     Dosage: 2.5 G EVERY DAY, AS REQUIRED
     Route: 048
     Dates: start: 20180806
  6. PONSTEL [Concomitant]
     Active Substance: MEFENAMIC ACID
     Indication: PYREXIA
     Route: 048
     Dates: end: 20180804
  7. ZOLPIDEM TARTRATE. [Concomitant]
     Active Substance: ZOLPIDEM TARTRATE
     Indication: INSOMNIA
     Route: 048
  8. IMFINZI [Suspect]
     Active Substance: DURVALUMAB
     Indication: NON-SMALL CELL LUNG CANCER
     Route: 041
     Dates: start: 20180724, end: 20180807
  9. SANMEL [Concomitant]
     Active Substance: SODIUM ALGINATE
     Indication: PEPTIC ULCER
     Route: 048
     Dates: end: 20180804
  10. EPINASTINE HYDROCHLORIDE. [Concomitant]
     Active Substance: EPINASTINE HYDROCHLORIDE
     Indication: RHINITIS ALLERGIC
     Route: 048
     Dates: end: 20181016
  11. MAGMITT [Concomitant]
     Active Substance: MAGNESIUM OXIDE
     Indication: CONSTIPATION
     Dosage: 330 MG EVERY DAY, AS REQUIRED
     Route: 048

REACTIONS (6)
  - Anaemia [Recovered/Resolved]
  - Neuralgia [Not Recovered/Not Resolved]
  - Febrile neutropenia [Recovered/Resolved]
  - Platelet count decreased [Recovered/Resolved]
  - Cerebral infarction [Recovering/Resolving]
  - Nocardia test positive [Unknown]

NARRATIVE: CASE EVENT DATE: 20180804
